FAERS Safety Report 4515126-1 (Version None)
Quarter: 2004Q4

REPORT INFORMATION
  Report Type: 
  Country: None (occurrence: None)
  Receive Date: 20041129
  Receipt Date: 20041129
  Transmission Date: 20050328
  Serious: Yes (Other)
  Sender: FDA-Public Use
  Company Number: None

PATIENT
  Age: 80 Year
  Sex: Male
  Weight: 89.4 kg

DRUGS (22)
  1. LIPITOR [Suspect]
  2. GLYBURIDE [Concomitant]
  3. CALCIUM 250MG/VITAMIN D 125 [Concomitant]
  4. DOCUSATE NA [Concomitant]
  5. THIAMINE HCL [Concomitant]
  6. FLUTICAS 250/SALMETEROL 50 [Concomitant]
  7. FOLIC ACID [Concomitant]
  8. RABEPRAZOLE NA [Concomitant]
  9. RAMIPRIL [Concomitant]
  10. VENLAFAXINE HCL [Concomitant]
  11. IRBESARTAN [Concomitant]
  12. LEVOTHYROXINE SODIUM [Concomitant]
  13. IPRATROPIUM BR [Concomitant]
  14. METFORMIN HCL [Concomitant]
  15. METOPROLOL TARTRATE [Concomitant]
  16. FENOFIBRATE [Concomitant]
  17. HYDROCHLOROTHIAZIDE [Concomitant]
  18. SUNSCREEN-30 PABA-FREE COMBINATION [Concomitant]
  19. NITROGLYCERIN [Concomitant]
  20. TRAMADOL HCL [Concomitant]
  21. ATORVASTATIN CALCIUM [Concomitant]
  22. ALBUTEROL [Concomitant]

REACTIONS (2)
  - ASTHENIA [None]
  - MYALGIA [None]
